FAERS Safety Report 12928742 (Version 1)
Quarter: 2016Q4

REPORT INFORMATION
  Report Type: Spontaneous
  Country: US (occurrence: US)
  Receive Date: 20161110
  Receipt Date: 20161110
  Transmission Date: 20170207
  Serious: Yes (Other)
  Sender: FDA-Public Use
  Company Number: US-ELI_LILLY_AND_COMPANY-US201510006668

PATIENT
  Sex: Female

DRUGS (4)
  1. CYMBALTA [Suspect]
     Active Substance: DULOXETINE HYDROCHLORIDE
     Indication: DEPRESSION
     Dosage: 30 MG, UNKNOWN
     Route: 065
     Dates: start: 2013
  2. CYMBALTA [Suspect]
     Active Substance: DULOXETINE HYDROCHLORIDE
     Indication: PAIN
     Dosage: UNK, UNKNOWN
     Route: 065
  3. CYMBALTA [Suspect]
     Active Substance: DULOXETINE HYDROCHLORIDE
     Dosage: 60 MG, UNKNOWN
     Route: 065
     Dates: start: 2014
  4. CYMBALTA [Suspect]
     Active Substance: DULOXETINE HYDROCHLORIDE
     Dosage: 60 MG, UNKNOWN
     Route: 065
     Dates: start: 2013

REACTIONS (18)
  - Sensory disturbance [Unknown]
  - Agitation [Unknown]
  - Nightmare [Unknown]
  - Nausea [Unknown]
  - Dysphoria [Unknown]
  - Hot flush [Unknown]
  - Hyperhidrosis [Unknown]
  - Irritability [Unknown]
  - Anxiety [Unknown]
  - Fatigue [Unknown]
  - Paraesthesia [Unknown]
  - Sleep disorder [Unknown]
  - Confusional state [Unknown]
  - Vertigo [Unknown]
  - Drug withdrawal syndrome [Unknown]
  - Affect lability [Unknown]
  - Headache [Unknown]
  - Migraine [Unknown]
